FAERS Safety Report 4616503-0 (Version None)
Quarter: 2005Q1

REPORT INFORMATION
  Report Type: 
  Country: None (occurrence: None)
  Receive Date: 20050318
  Receipt Date: 20050307
  Transmission Date: 20050727
  Serious: Yes (Death)
  Sender: FDA-Public Use
  Company Number: 2005-00363

PATIENT

DRUGS (3)
  1. INTEGRILIN [Suspect]
     Indication: CORONARY ANGIOPLASTY
     Dosage: SEE IMAGE
     Route: 040
  2. CLOPIDOGREL BISULFATE [Suspect]
  3. ASPIRIN [Concomitant]

REACTIONS (1)
  - SUDDEN DEATH [None]
